FAERS Safety Report 8837098 (Version 2)
Quarter: 2014Q1

REPORT INFORMATION
  Report Type: Report from Study
  Country: US (occurrence: US)
  Receive Date: 20121011
  Receipt Date: 20140131
  Transmission Date: 20141002
  Serious: Yes (Other)
  Sender: FDA-Public Use
  Company Number: US-ROCHE-752513

PATIENT
  Sex: Female

DRUGS (14)
  1. BEVACIZUMAB [Suspect]
     Indication: VENOUS OCCLUSION
     Dosage: 1.25 MG/0.05 ML
     Route: 050
     Dates: start: 20100307, end: 20100307
  2. BEVACIZUMAB [Suspect]
     Dosage: 1.25 MG/0.05 ML
     Route: 050
     Dates: start: 20100721, end: 20100721
  3. RANIBIZUMAB [Suspect]
     Indication: PRODUCT USED FOR UNKNOWN INDICATION
     Dosage: 1.25 MG, Q3M
     Route: 031
  4. DEXAMETHASONE [Concomitant]
     Route: 065
     Dates: start: 20100818, end: 20100818
  5. ATENOLOL [Concomitant]
     Route: 065
  6. LEVOTHYROXINE [Concomitant]
     Route: 065
  7. CELEBREX [Concomitant]
     Route: 065
  8. ALPRAZOLAM [Concomitant]
     Route: 065
  9. CARISOPRODOL [Concomitant]
     Route: 065
  10. AMLODIPINE [Concomitant]
     Route: 065
  11. NEXIUM [Concomitant]
     Route: 065
  12. BACLOFEN [Concomitant]
     Route: 065
  13. FOSINOPRIL [Concomitant]
     Route: 065
  14. DETROL [Concomitant]
     Route: 065

REACTIONS (5)
  - Transient ischaemic attack [Unknown]
  - Blood pressure increased [Unknown]
  - Paraesthesia [Unknown]
  - Photophobia [Unknown]
  - Eye pain [Unknown]
